FAERS Safety Report 15937152 (Version 1)
Quarter: 2019Q1

REPORT INFORMATION
  Report Type: Spontaneous
  Country: US (occurrence: US)
  Receive Date: 20190117
  Receipt Date: 20190117
  Transmission Date: 20190417
  Serious: No
  Sender: FDA-Public Use
  Company Number: None

PATIENT
  Age: 14 Year
  Sex: Male
  Weight: 63 kg

DRUGS (6)
  1. VINCRISTINE SULFATE. [Suspect]
     Active Substance: VINCRISTINE SULFATE
     Dates: end: 20181127
  2. ETOPOSIDE (VP-16) [Suspect]
     Active Substance: ETOPOSIDE
     Dates: end: 20181222
  3. CYCLOPHOSPHAMIDE (26271) [Suspect]
     Active Substance: CYCLOPHOSPHAMIDE
     Dates: end: 20181222
  4. DEXAMETHASONE. [Suspect]
     Active Substance: DEXAMETHASONE
     Dates: end: 20181201
  5. METHOTREXATE. [Suspect]
     Active Substance: METHOTREXATE
     Dates: end: 20181206
  6. AMPHOTERICIN [Concomitant]
     Active Substance: AMPHOTERICIN B

REACTIONS (5)
  - Upper respiratory fungal infection [None]
  - Hypokalaemia [None]
  - Bacterial infection [None]
  - Febrile neutropenia [None]
  - Pneumothorax [None]

NARRATIVE: CASE EVENT DATE: 20190104
